FAERS Safety Report 26143409 (Version 1)
Quarter: 2025Q4

REPORT INFORMATION
  Report Type: Spontaneous
  Country: US (occurrence: US)
  Receive Date: 20251211
  Receipt Date: 20251211
  Transmission Date: 20260117
  Serious: Yes (Other)
  Sender: AUROBINDO
  Company Number: US-MLMSERVICE-20251121-PI722129-00271-1

PATIENT
  Age: 55 Year
  Sex: Male

DRUGS (1)
  1. PREDNISONE [Suspect]
     Active Substance: PREDNISONE
     Indication: Pulmonary sarcoidosis
     Dosage: UNK
     Route: 065

REACTIONS (3)
  - Unmasking of previously unidentified disease [Unknown]
  - Hypoparathyroidism [Unknown]
  - Hypocalcaemia [Recovering/Resolving]
